FAERS Safety Report 10645016 (Version 1)
Quarter: 2014Q4

REPORT INFORMATION
  Report Type: Spontaneous
  Country: None (occurrence: None)
  Receive Date: 20141210
  Receipt Date: 20141210
  Transmission Date: 20150529
  Serious: No
  Sender: FDA-Public Use
  Company Number: None

PATIENT
  Age: 54 Year
  Sex: Female
  Weight: 110.22 kg

DRUGS (1)
  1. SERTRALINE [Suspect]
     Active Substance: SERTRALINE HYDROCHLORIDE
     Dosage: 1 PILL DAILY, ONCE DAILY, TAKEN BY MOUTH
     Route: 048

REACTIONS (3)
  - Sensation of foreign body [None]
  - Dyspnoea [None]
  - Dyspepsia [None]

NARRATIVE: CASE EVENT DATE: 20141209
